FAERS Safety Report 5420255-4 (Version None)
Quarter: 2007Q3

REPORT INFORMATION
  Report Type: 
  Country: None (occurrence: None)
  Receive Date: 20070815
  Receipt Date: 20070731
  Transmission Date: 20080115
  Serious: Yes (Hospitalization, Other)
  Sender: FDA-Public Use
  Company Number: 159532ISR

PATIENT
  Age: 73 Year
  Sex: Male

DRUGS (1)
  1. SIMVASTATIN [Suspect]
     Indication: HYPERCHOLESTEROLAEMIA
     Dosage: (40 MG)
     Route: 048
     Dates: start: 20050101

REACTIONS (1)
  - LOSS OF CONSCIOUSNESS [None]
